FAERS Safety Report 6653071-6 (Version None)
Quarter: 2010Q1

REPORT INFORMATION
  Report Type: 
  Country: None (occurrence: None)
  Receive Date: 20100311
  Receipt Date: 20090520
  Transmission Date: 20100710
  Serious: Yes (Other)
  Sender: FDA-Public Use
  Company Number: 2009201243

PATIENT
  Age: 76 Year
  Sex: Female
  Weight: 70.3 kg

DRUGS (7)
  1. NIFEDIPINE (NIFEDIPINE) MODIFIED-RELEASE TABLET [Suspect]
     Indication: HYPERTENSION
     Dosage: 90 MG, 1X/DAY, ORAL
     Route: 048
     Dates: start: 20090418, end: 20090420
  2. DIOVANE (VALSARTAN) [Concomitant]
  3. CATAPRES [Concomitant]
  4. NITROGLYCERIN [Concomitant]
  5. ATENOLOL [Concomitant]
  6. ACIPHEX [Concomitant]
  7. LEVOTHYROXINE SODIUM [Concomitant]

REACTIONS (8)
  - ANXIETY [None]
  - BLOOD PRESSURE INADEQUATELY CONTROLLED [None]
  - DRY MOUTH [None]
  - DYSPHAGIA [None]
  - HEADACHE [None]
  - OROPHARYNGEAL PAIN [None]
  - PHARYNGEAL ERYTHEMA [None]
  - TOOTHACHE [None]
